FAERS Safety Report 5473591-X (Version None)
Quarter: 2007Q3

REPORT INFORMATION
  Report Type: 
  Country: None (occurrence: None)
  Receive Date: 20070831
  Receipt Date: 20070605
  Transmission Date: 20080115
  Serious: No
  Sender: FDA-Public Use
  Company Number: 242444

PATIENT
  Age: 81 Year
  Sex: Male
  Weight: 44 kg

DRUGS (1)
  1. LUCENTIS [Suspect]
     Indication: OCULAR VASCULAR DISORDER
     Dosage: INTRAVITREAL
     Route: 050
     Dates: start: 20070414

REACTIONS (1)
  - BLOOD PRESSURE INCREASED [None]
